FAERS Safety Report 8273594-6 (Version None)
Quarter: 2012Q2

REPORT INFORMATION
  Report Type: 
  Country: None (occurrence: None)
  Receive Date: 20120411
  Receipt Date: 20120330
  Transmission Date: 20120825
  Serious: Yes (Hospitalization)
  Sender: FDA-Public Use
  Company Number: FR-BRISTOL-MYERS SQUIBB COMPANY-16499394

PATIENT
  Age: 79 Year
  Sex: Female

DRUGS (3)
  1. COUMADIN [Suspect]
     Indication: ATRIAL FIBRILLATION
     Dosage: COUMADINE 2 MG, SCORED TABLET
     Route: 048
     Dates: start: 20120201
  2. ASPIRIN [Suspect]
     Dosage: POWDER FOR ORAL SOLUTION IN SINGLE DOSE SACHET
     Route: 048
     Dates: end: 20120207
  3. LOVENOX [Suspect]
     Indication: ATRIAL FIBRILLATION
     Dosage: LOVENOX 8000 IU ANTI-XA/0.8 ML, SOLUTION FOR INJECTION (S.C.) IN PRE-FILLED SYRINGE
     Route: 058
     Dates: start: 20120125, end: 20120207

REACTIONS (2)
  - ABDOMINAL WALL HAEMATOMA [None]
  - ANAEMIA [None]
